FAERS Safety Report 24359113 (Version 1)
Quarter: 2024Q3

REPORT INFORMATION
  Report Type: Report from Study
  Country: US (occurrence: US)
  Receive Date: 20240924
  Receipt Date: 20240924
  Transmission Date: 20241017
  Serious: No
  Sender: Unknown Manufacturer
  Company Number: US-ROCHE-3567367

PATIENT

DRUGS (4)
  1. PRALSETINIB [Suspect]
     Active Substance: PRALSETINIB
     Indication: Brain neoplasm malignant
     Dosage: TAKE 4 TABLET(S) BY MOUTH (400MG) DAILY
     Route: 048
  2. PRALSETINIB [Suspect]
     Active Substance: PRALSETINIB
     Indication: Bronchial carcinoma
  3. PRALSETINIB [Suspect]
     Active Substance: PRALSETINIB
     Indication: Metastases to central nervous system
  4. PRALSETINIB [Suspect]
     Active Substance: PRALSETINIB
     Indication: Neoplasm malignant

REACTIONS (1)
  - Oropharyngeal discomfort [Unknown]
